FAERS Safety Report 8872816 (Version 1)
Quarter: 2012Q4

REPORT INFORMATION
  Report Type: 
  Country: FR (occurrence: FR)
  Receive Date: 20121029
  Receipt Date: 20121029
  Transmission Date: 20130627
  Serious: Yes (Other)
  Sender: FDA-Public Use
  Company Number: FR-ABBOTT-12P-056-0992402-00

PATIENT
  Age: 58 Year
  Sex: Male
  Weight: 54 kg

DRUGS (3)
  1. HUMIRA [Suspect]
     Indication: PSORIASIS
     Dates: start: 2011
  2. HUMIRA [Suspect]
     Dates: start: 201201, end: 201204
  3. DAIVOBET [Concomitant]

REACTIONS (4)
  - Nodal marginal zone B-cell lymphoma [Not Recovered/Not Resolved]
  - Psoriasis [Unknown]
  - Fatigue [Unknown]
  - Lymphadenopathy [Unknown]
